FAERS Safety Report 23559825 (Version 1)
Quarter: 2024Q1

REPORT INFORMATION
  Report Type: Spontaneous
  Country: US (occurrence: US)
  Receive Date: 20240223
  Receipt Date: 20240223
  Transmission Date: 20240409
  Serious: Yes (Hospitalization)
  Sender: FDA-Public Use
  Company Number: US-STRIDES ARCOLAB LIMITED-2024SP002203

PATIENT
  Age: 60 Year
  Sex: Female

DRUGS (1)
  1. MEGESTROL ACETATE [Suspect]
     Active Substance: MEGESTROL ACETATE
     Indication: Product used for unknown indication
     Dosage: 40 MILLIGRAM, BID
     Route: 065

REACTIONS (3)
  - Hyponatraemia [Recovered/Resolved]
  - Hypothalamic pituitary adrenal axis suppression [Unknown]
  - Adrenal insufficiency [Unknown]
